FAERS Safety Report 24717967 (Version 1)
Quarter: 2024Q4

REPORT INFORMATION
  Report Type: Report from Study
  Country: GB (occurrence: GB)
  Receive Date: 20241210
  Receipt Date: 20241210
  Transmission Date: 20250115
  Serious: Yes (Other)
  Sender: ASTELLAS
  Company Number: GB-ASTELLAS-2024-AER-023790

PATIENT
  Age: 67 Year
  Sex: Male

DRUGS (4)
  1. ENZALUTAMIDE [Suspect]
     Active Substance: ENZALUTAMIDE
     Indication: Prostate cancer
     Dosage: SHORTLY STOPPED AFTER THREE CYCLES
     Route: 065
  2. ABIRATERONE [Suspect]
     Active Substance: ABIRATERONE\ABIRATERONE ACETATE
     Indication: Prostate cancer
     Dosage: SHORTLY STOPPED AFTER THREE CYCLES
     Route: 065
  3. Decapeptyl [Concomitant]
     Indication: Prostate cancer
     Dosage: SIX-MONTHLY
     Route: 065
  4. PREDNISOLONE [Concomitant]
     Active Substance: PREDNISOLONE
     Indication: Prostate cancer
     Route: 065

REACTIONS (1)
  - Hepatotoxicity [Unknown]
